FAERS Safety Report 7928736-6 (Version None)
Quarter: 2011Q4

REPORT INFORMATION
  Report Type: 
  Country: None (occurrence: None)
  Receive Date: 20111118
  Receipt Date: 20111110
  Transmission Date: 20120403
  Serious: Yes (Other)
  Sender: FDA-Public Use
  Company Number: CHPA2011FI015885

PATIENT
  Sex: Female

DRUGS (2)
  1. NICOTINE [Suspect]
     Indication: NICOTINE DEPENDENCE
     Dosage: 1 MG, QD
     Route: 048
     Dates: start: 20110101, end: 20110101
  2. NICOTINE [Suspect]
     Indication: NICOTINE DEPENDENCE
     Dosage: 2 MG, QD, UNDER ONE MONTH'S TIME
     Dates: start: 20110101

REACTIONS (1)
  - DRUG DEPENDENCE [None]
